FAERS Safety Report 24650006 (Version 1)
Quarter: 2024Q4

REPORT INFORMATION
  Report Type: Spontaneous
  Country: CN (occurrence: CN)
  Receive Date: 20241122
  Receipt Date: 20241122
  Transmission Date: 20250115
  Serious: Yes (Other)
  Sender: BAXTER
  Company Number: None

PATIENT
  Age: 39 Year
  Sex: Female
  Weight: 49.5 kg

DRUGS (12)
  1. CYCLOPHOSPHAMIDE [Suspect]
     Active Substance: CYCLOPHOSPHAMIDE
     Indication: Gestational trophoblastic tumour
     Dosage: 0.88 G, ONE TIME IN ONE DAY, DILUTED WITH 0.9% SODIUM CHLORIDE (NS) 100ML
     Route: 041
     Dates: start: 20240816, end: 20240816
  2. SODIUM CHLORIDE [Suspect]
     Active Substance: SODIUM CHLORIDE
     Indication: Medication dilution
     Dosage: 100 ML (0.9% INJECTION), ONE TIME IN ONE DAY, USED TO DILUTE CYCLOPHOSPHAMIDE 0.88G
     Route: 041
     Dates: start: 20240816, end: 20240816
  3. SODIUM CHLORIDE [Suspect]
     Active Substance: SODIUM CHLORIDE
     Dosage: 100 ML (0.9%), ONE TIME IN ONE DAY, USED TO DILUTE DACTINOMYCIN 500 UG
     Route: 041
     Dates: start: 20240809, end: 20240810
  4. SODIUM CHLORIDE [Suspect]
     Active Substance: SODIUM CHLORIDE
     Dosage: 500 ML (0.9%), ONE TIME IN ONE DAY, USED TO DILUTE ETOPOSIDE 0.1G
     Route: 041
     Dates: start: 20240809, end: 20240809
  5. SODIUM CHLORIDE [Suspect]
     Active Substance: SODIUM CHLORIDE
     Dosage: 500 ML (0.9%) AND 500 ML (0.9%), ONE TIME IN ONE DAY, USED TO DILUTE ETOPOSIDE 0.147G
     Route: 041
     Dates: start: 20240810, end: 20240810
  6. SODIUM CHLORIDE [Suspect]
     Active Substance: SODIUM CHLORIDE
     Dosage: 100 ML (0.9%), ONE TIME IN ONE DAY, USED TO DILUTE METHOTREXATE INJECTION 147 MG
     Route: 041
     Dates: start: 20240809, end: 20240809
  7. DEXTROSE [Suspect]
     Active Substance: DEXTROSE MONOHYDRATE
     Indication: Medication dilution
     Dosage: 500 ML (5%), ONE TIME IN ONE DAY, USED TO DILUTED VINDESINE SULFATE 4.4MG
     Route: 041
     Dates: start: 20240816, end: 20240816
  8. DACTINOMYCIN [Suspect]
     Active Substance: DACTINOMYCIN
     Indication: Gestational trophoblastic tumour
     Dosage: 500 UG, ONE TIME IN ONE DAY, DILUTED WITH 0.9% NS 100ML
     Route: 041
     Dates: start: 20240809, end: 20240810
  9. VINDESINE SULFATE [Suspect]
     Active Substance: VINDESINE SULFATE
     Indication: Gestational trophoblastic tumour
     Dosage: 4.4 MG, ONE TIME IN ONE DAY, DILUTED WITH 5% GLUCOSE INJECTION 500ML
     Route: 041
     Dates: start: 20240816, end: 20240816
  10. ETOPOSIDE [Suspect]
     Active Substance: ETOPOSIDE
     Indication: Gestational trophoblastic tumour
     Dosage: 0.1 G, ONE TIME IN ONE DAY, DILUTED WITH 0.9% NS 500ML
     Route: 041
     Dates: start: 20240809, end: 20240809
  11. ETOPOSIDE [Suspect]
     Active Substance: ETOPOSIDE
     Dosage: 0.147 G, ONE TIME IN ONE DAY, DILUTED WITH 0.9% NS 500ML AND 0.9% NS 500ML
     Route: 041
     Dates: start: 20240810, end: 20240810
  12. METHOTREXATE [Suspect]
     Active Substance: METHOTREXATE
     Indication: Gestational trophoblastic tumour
     Dosage: 147 MG, ONE TIME IN ONE DAY, USED TO DILUTE 0.9% NS 100ML
     Route: 041
     Dates: start: 20240809, end: 20240809

REACTIONS (2)
  - Myelosuppression [Recovering/Resolving]
  - Neutrophil count decreased [Recovering/Resolving]

NARRATIVE: CASE EVENT DATE: 20240817
